FAERS Safety Report 4966643-1 (Version None)
Quarter: 2006Q2

REPORT INFORMATION
  Report Type: 
  Country: None (occurrence: None)
  Receive Date: 20060407
  Receipt Date: 20060322
  Transmission Date: 20061013
  Serious: Yes (Other)
  Sender: FDA-Public Use
  Company Number: JP-AVENTIS-200610954JP

PATIENT
  Age: 66 Year
  Sex: Female

DRUGS (5)
  1. LANTUS [Suspect]
     Indication: DIABETES MELLITUS
     Route: 058
     Dates: start: 20060224
  2. OPTICLIK (INSULIN INJECTION PEN) [Suspect]
  3. NOVORAPID [Concomitant]
     Route: 058
     Dates: start: 20060224
  4. PENFILL R [Concomitant]
     Dates: start: 20060215
  5. PENFILL N [Concomitant]
     Dates: start: 20060215

REACTIONS (1)
  - LIVER DISORDER [None]
